FAERS Safety Report 25932994 (Version 2)
Quarter: 2025Q4

REPORT INFORMATION
  Report Type: Report from Study
  Country: US (occurrence: US)
  Receive Date: 20251017
  Receipt Date: 20251023
  Transmission Date: 20260118
  Serious: Yes (Other)
  Sender: ALEXION PHARMACEUTICALS
  Company Number: A202300818

PATIENT
  Age: 49 Year
  Sex: Male

DRUGS (1)
  1. STRENSIQ [Suspect]
     Active Substance: ASFOTASE ALFA
     Indication: Phosphorus metabolism disorder
     Dosage: 130 MILLIGRAM, TIW
     Route: 065

REACTIONS (6)
  - Multiple fractures [Unknown]
  - Arthritis [Unknown]
  - Back pain [Unknown]
  - Headache [Unknown]
  - Hypertension [Unknown]
  - Weight decreased [Unknown]
